FAERS Safety Report 9551895 (Version 1)
Quarter: 2013Q3

REPORT INFORMATION
  Report Type: Spontaneous
  Country: US (occurrence: None)
  Receive Date: 20130923
  Receipt Date: 20130923
  Transmission Date: 20140515
  Serious: Yes (Hospitalization)
  Sender: FDA-Public Use
  Company Number: None

PATIENT
  Age: 49 Year
  Sex: Male

DRUGS (1)
  1. TEMODAR [Suspect]
     Dosage: 7 CAPS
     Route: 048

REACTIONS (6)
  - Accidental overdose [None]
  - Decreased appetite [None]
  - Nausea [None]
  - Vomiting [None]
  - Pyrexia [None]
  - Toxic skin eruption [None]
